FAERS Safety Report 4773945-0 (Version None)
Quarter: 2005Q3

REPORT INFORMATION
  Report Type: 
  Country: None (occurrence: None)
  Receive Date: 20050919
  Receipt Date: 20050907
  Transmission Date: 20060218
  Serious: Yes (Hospitalization)
  Sender: FDA-Public Use
  Company Number: MEDI-0003629

PATIENT
  Age: 47 Year
  Sex: Female
  Weight: 63 kg

DRUGS (11)
  1. ETHYOL [Suspect]
     Indication: CHEMOTHERAPY
     Dosage: 500 MG, 5 IN 1 WK, SUBCUTANEOUS
     Route: 058
     Dates: start: 20050810
  2. ETHYOL [Suspect]
     Indication: RADIOTHERAPY
     Dosage: 500 MG, 5 IN 1 WK, SUBCUTANEOUS
     Route: 058
     Dates: start: 20050810
  3. RADIATION THERAPY [Concomitant]
  4. LEVAQUIN [Concomitant]
  5. ATIVAN [Concomitant]
  6. TYLENOL (PARACETAMOL) [Concomitant]
  7. PROTONIX [Concomitant]
  8. DIFLUCAN [Concomitant]
  9. MYCELEX [Concomitant]
  10. FLAGYL [Concomitant]
  11. ZOFRAN [Concomitant]

REACTIONS (22)
  - ANXIETY [None]
  - ARTHRALGIA [None]
  - BLOOD PRESSURE DECREASED [None]
  - BODY TEMPERATURE INCREASED [None]
  - BURNS FIRST DEGREE [None]
  - CHILLS [None]
  - FEBRILE NEUTROPENIA [None]
  - FEELING ABNORMAL [None]
  - HEART RATE INCREASED [None]
  - LATEX ALLERGY [None]
  - MALAISE [None]
  - MUCOSAL EROSION [None]
  - NAUSEA [None]
  - ORAL MUCOSAL DISORDER [None]
  - OXYGEN SATURATION DECREASED [None]
  - PAIN OF SKIN [None]
  - PHARYNGOLARYNGEAL PAIN [None]
  - RASH GENERALISED [None]
  - RASH PAPULAR [None]
  - RASH PRURITIC [None]
  - SKIN BURNING SENSATION [None]
  - TACHYCARDIA [None]
